FAERS Safety Report 4378690-1 (Version None)
Quarter: 2004Q2

REPORT INFORMATION
  Report Type: 
  Country: None (occurrence: None)
  Receive Date: 20040616
  Receipt Date: 20040609
  Transmission Date: 20050107
  Serious: Yes (Death)
  Sender: FDA-Public Use
  Company Number: AU-ROCHE-370464

PATIENT
  Age: 84 Year
  Sex: Female

DRUGS (2)
  1. VALIUM [Suspect]
     Indication: DRUG USE FOR UNKNOWN INDICATION
     Route: 048
  2. MORPHINE SULFATE [Suspect]
     Indication: PAIN
     Route: 065

REACTIONS (2)
  - DEATH [None]
  - DEPRESSED LEVEL OF CONSCIOUSNESS [None]
